FAERS Safety Report 7556071-7 (Version None)
Quarter: 2011Q2

REPORT INFORMATION
  Report Type: 
  Country: None (occurrence: None)
  Receive Date: 20110620
  Receipt Date: 20110607
  Transmission Date: 20111010
  Serious: No
  Sender: FDA-Public Use
  Company Number: US-BIOGENIDEC-2011BI007565

PATIENT
  Age: 36 Year
  Sex: Male

DRUGS (1)
  1. TYSABRI [Suspect]
     Indication: MULTIPLE SCLEROSIS
     Route: 042
     Dates: start: 20101129, end: 20110428

REACTIONS (15)
  - PAIN [None]
  - MOOD ALTERED [None]
  - PRURITUS [None]
  - MALAISE [None]
  - MULTIPLE SCLEROSIS [None]
  - AGGRESSION [None]
  - HEADACHE [None]
  - DEPRESSION [None]
  - MULTIPLE SCLEROSIS RELAPSE [None]
  - FATIGUE [None]
  - SOMNOLENCE [None]
  - APATHY [None]
  - DRUG SPECIFIC ANTIBODY PRESENT [None]
  - NAUSEA [None]
  - URTICARIA [None]
